FAERS Safety Report 5106789-0 (Version None)
Quarter: 2006Q3

REPORT INFORMATION
  Report Type: 
  Country: None (occurrence: None)
  Receive Date: 20060731
  Receipt Date: 20050930
  Transmission Date: 20061208
  Serious: Yes (Other)
  Sender: FDA-Public Use
  Company Number: US-JNJFOC-20051000157

PATIENT
  Age: 34 Year
  Sex: Male

DRUGS (7)
  1. RISPERDAL [Suspect]
     Indication: SCHIZOPHRENIA
     Dosage: SEE IMAGE
     Route: 048
     Dates: start: 20040726, end: 20040726
  2. RISPERDAL [Suspect]
     Indication: SCHIZOPHRENIA
     Dosage: SEE IMAGE
     Route: 048
     Dates: start: 20040727, end: 20040727
  3. RISPERDAL [Suspect]
     Indication: SCHIZOPHRENIA
     Dosage: SEE IMAGE
     Route: 048
     Dates: start: 20040728, end: 20040808
  4. ATIVAN [Concomitant]
  5. MYANTA (MYLANTA) [Concomitant]
  6. AMBIEN [Concomitant]
  7. ABILIFY [Concomitant]

REACTIONS (1)
  - SUICIDAL IDEATION [None]
